FAERS Safety Report 7736986-7 (Version None)
Quarter: 2011Q3

REPORT INFORMATION
  Report Type: 
  Country: None (occurrence: None)
  Receive Date: 20110908
  Receipt Date: 20110826
  Transmission Date: 20111222
  Serious: Yes (Hospitalization, Other)
  Sender: FDA-Public Use
  Company Number: US-ELI_LILLY_AND_COMPANY-US201108009080

PATIENT
  Age: 59 Year
  Sex: Female

DRUGS (12)
  1. OXYBUTYNIN [Concomitant]
     Dosage: 10 MG, QD
  2. DOCUSATE SODIUM [Concomitant]
     Dosage: 100 MG, OTHER
  3. FORTEO [Suspect]
     Indication: OSTEOPOROSIS
     Dosage: 20 UG, QD
     Dates: start: 20101101
  4. VITAMIN D [Concomitant]
     Dosage: 50000 IU, UNK
  5. OXYCONTIN [Concomitant]
     Dosage: 20 MG, QD
  6. CLONAZEPAM [Concomitant]
     Dosage: 0.5 MG, QD
  7. PROZAC [Concomitant]
     Dosage: 40 MG, UNK
  8. LEVETIRACETAM [Concomitant]
     Dosage: 500 MG, BID
  9. OXYCODONE AND ACETAMINOPHEN [Concomitant]
  10. ZYRTEC [Concomitant]
     Dosage: 10 MG, UNK
  11. GABAPENTIN [Concomitant]
     Dosage: 400 MG, QD
  12. CALCIUM CARBONATE [Concomitant]
     Dosage: 1200 MG, UNK

REACTIONS (10)
  - PROCEDURAL PAIN [None]
  - DEVICE BREAKAGE [None]
  - NEPHROLITHIASIS [None]
  - FEELING OF BODY TEMPERATURE CHANGE [None]
  - OEDEMA PERIPHERAL [None]
  - SURGERY [None]
  - TREMOR [None]
  - DELUSION [None]
  - URINARY TRACT INFECTION [None]
  - INCOHERENT [None]
